FAERS Safety Report 6852698-6 (Version None)
Quarter: 2010Q3

REPORT INFORMATION
  Report Type: 
  Country: None (occurrence: None)
  Receive Date: 20100717
  Receipt Date: 20071120
  Transmission Date: 20110219
  Serious: No
  Sender: FDA-Public Use
  Company Number: US-PFIZER INC-2007099682

PATIENT
  Sex: Female
  Weight: 99.545 kg

DRUGS (8)
  1. CHANTIX [Suspect]
     Indication: SMOKING CESSATION THERAPY
     Dates: start: 20071113
  2. CAFFEINE [Suspect]
  3. TOPROL-XL [Concomitant]
  4. WELLBUTRIN [Concomitant]
  5. TRICOR [Concomitant]
  6. ZOCOR [Concomitant]
  7. NEXIUM [Concomitant]
  8. ALL OTHER THERAPEUTIC PRODUCTS [Concomitant]

REACTIONS (2)
  - ANXIETY [None]
  - DRUG DOSE OMISSION [None]
